FAERS Safety Report 13018019 (Version 2)
Quarter: 2016Q4

REPORT INFORMATION
  Report Type: Spontaneous
  Country: US (occurrence: US)
  Receive Date: 20161212
  Receipt Date: 20161226
  Transmission Date: 20170207
  Serious: Yes (Death, Hospitalization, Other)
  Sender: FDA-Public Use
  Company Number: US-DRREDDYS-USA/USA/16/0085454

PATIENT
  Age: 63 Year
  Sex: Female

DRUGS (3)
  1. SIMVASTATIN. [Suspect]
     Active Substance: SIMVASTATIN
     Indication: PRODUCT USED FOR UNKNOWN INDICATION
     Route: 065
  2. ASPIRIN. [Suspect]
     Active Substance: ASPIRIN
     Indication: PRODUCT USED FOR UNKNOWN INDICATION
     Route: 065
  3. HEPARIN [Suspect]
     Active Substance: HEPARIN SODIUM
     Indication: THROMBOSIS PROPHYLAXIS
     Route: 058

REACTIONS (11)
  - Hemiplegia [Not Recovered/Not Resolved]
  - Facial paralysis [Not Recovered/Not Resolved]
  - Aphasia [Not Recovered/Not Resolved]
  - Lethargy [Not Recovered/Not Resolved]
  - Haemorrhage [Unknown]
  - Somnolence [Not Recovered/Not Resolved]
  - Cerebral amyloid angiopathy [Fatal]
  - Cerebral haemorrhage [Fatal]
  - Brain herniation [Fatal]
  - Haemangioma [Unknown]
  - Subarachnoid haemorrhage [Unknown]
